FAERS Safety Report 7862671-7 (Version None)
Quarter: 2011Q4

REPORT INFORMATION
  Report Type: 
  Country: None (occurrence: None)
  Receive Date: 20111027
  Receipt Date: 20101111
  Transmission Date: 20120403
  Serious: No
  Sender: FDA-Public Use
  Company Number: US-AMGEN-USASP2010004949

PATIENT
  Age: 41 Year
  Sex: Female

DRUGS (1)
  1. ENBREL [Suspect]
     Indication: RHEUMATOID ARTHRITIS

REACTIONS (5)
  - HYPERHIDROSIS [None]
  - MALAISE [None]
  - NAUSEA [None]
  - INJECTION SITE ERYTHEMA [None]
  - OCULAR HYPERAEMIA [None]
